FAERS Safety Report 15687073 (Version 2)
Quarter: 2018Q4

REPORT INFORMATION
  Report Type: Spontaneous
  Country: PL (occurrence: PL)
  Receive Date: 20181204
  Receipt Date: 20181218
  Transmission Date: 20190205
  Serious: Yes (Other)
  Sender: FDA-Public Use
  Company Number: PL-MYLANLABS-2018M1090466

PATIENT
  Age: 23 Year
  Sex: Female

DRUGS (4)
  1. CARBAMAZEPINE. [Suspect]
     Active Substance: CARBAMAZEPINE
     Indication: EPILEPSY
     Dosage: 1.2 GRAM, QD
  2. BOTULINUM TOXIN [Suspect]
     Active Substance: BOTULINUM TOXIN NOS
     Indication: EPILEPSY
     Dosage: UNK
  3. BOTULINUM TOXIN [Suspect]
     Active Substance: BOTULINUM TOXIN NOS
     Indication: MUSCLE SPASTICITY
  4. VALPROIC ACID. [Suspect]
     Active Substance: VALPROIC ACID
     Indication: EPILEPSY
     Dosage: 1.5 GRAM, QD

REACTIONS (3)
  - Petit mal epilepsy [Unknown]
  - Condition aggravated [Unknown]
  - Myoclonic epilepsy [Unknown]
